FAERS Safety Report 12241112 (Version 1)
Quarter: 2016Q2

REPORT INFORMATION
  Report Type: Spontaneous
  Country: US (occurrence: None)
  Receive Date: 20160405
  Receipt Date: 20160405
  Transmission Date: 20160815
  Serious: Yes (Other)
  Sender: FDA-Public Use
  Company Number: None

PATIENT
  Age: 61 Year
  Sex: Female
  Weight: 57.15 kg

DRUGS (1)
  1. LEVOTHYROXINE, 75 MCG [Suspect]
     Active Substance: LEVOTHYROXINE
     Indication: HYPOTHYROIDISM
     Dosage: 75 UG/M2 DAILY ORAL
     Route: 048
     Dates: start: 20140115, end: 20140205

REACTIONS (5)
  - Fatigue [None]
  - Product substitution issue [None]
  - Dermatitis psoriasiform [None]
  - Chills [None]
  - Therapeutic response changed [None]

NARRATIVE: CASE EVENT DATE: 20140115
